FAERS Safety Report 12929678 (Version 2)
Quarter: 2016Q4

REPORT INFORMATION
  Report Type: Spontaneous
  Country: AT (occurrence: AT)
  Receive Date: 20161110
  Receipt Date: 20161130
  Transmission Date: 20170207
  Serious: Yes (Death, Hospitalization, Other)
  Sender: FDA-Public Use
  Company Number: AT-009507513-1611AUT004146

PATIENT
  Age: 69 Year
  Sex: Female

DRUGS (6)
  1. TRITTICO [Concomitant]
     Active Substance: TRAZODONE HYDROCHLORIDE
  2. HYDROMORPHONE [Concomitant]
     Active Substance: HYDROMORPHONE
  3. CITALOPRAM [Concomitant]
     Active Substance: CITALOPRAM HYDROBROMIDE
  4. KEYTRUDA [Suspect]
     Active Substance: PEMBROLIZUMAB
     Dosage: 2 MG/KG, 3 WEEKS BEFOR 3RE CYCLE
     Route: 042
     Dates: start: 20160928, end: 20161107
  5. AMLODIPINE [Concomitant]
     Active Substance: AMLODIPINE BESYLATE
  6. DIPYRONE [Concomitant]
     Active Substance: DIPYRONE

REACTIONS (6)
  - Meningitis [Unknown]
  - Meningeal disorder [Unknown]
  - Vasculitis [Unknown]
  - Encephalitis [Unknown]
  - Death [Fatal]
  - Malignant neoplasm progression [Unknown]

NARRATIVE: CASE EVENT DATE: 2016
